FAERS Safety Report 4316002-X (Version None)
Quarter: 2004Q1

REPORT INFORMATION
  Report Type: 
  Country: None (occurrence: None)
  Receive Date: 20040310
  Receipt Date: 20040224
  Transmission Date: 20041129
  Serious: Yes (Death)
  Sender: FDA-Public Use
  Company Number: 04P-144-0251665-00

PATIENT
  Age: 62 Year
  Sex: Male

DRUGS (3)
  1. KALETRA (KALETRA SOFT GELATIN CAPSULES) (LOPINAVIR/RITONAVIR) [Suspect]
     Indication: HIV INFECTION
     Dosage: 3 CAPSULES, 2 IN 1 D, ORAL
     Route: 048
     Dates: start: 20030226, end: 20030624
  2. STAVUDINE [Concomitant]
  3. TENOFOVIR [Concomitant]

REACTIONS (4)
  - DIARRHOEA [None]
  - MALAISE [None]
  - NEOPLASM PROGRESSION [None]
  - RESPIRATORY TRACT NEOPLASM [None]
